FAERS Safety Report 9891212 (Version 1)
Quarter: 2014Q1

REPORT INFORMATION
  Report Type: Spontaneous
  Country: IE (occurrence: None)
  Receive Date: 20140211
  Receipt Date: 20140211
  Transmission Date: 20141002
  Serious: Yes (Hospitalization, Disabling)
  Sender: FDA-Public Use
  Company Number: None

PATIENT
  Age: 27 Year
  Sex: Male
  Weight: 90 kg

DRUGS (1)
  1. CLOZAPINE [Suspect]
     Indication: PSYCHOTIC DISORDER
     Route: 048

REACTIONS (7)
  - Malaise [None]
  - Central nervous system viral infection [None]
  - Immunosuppression [None]
  - Memory impairment [None]
  - Activities of daily living impaired [None]
  - Cognitive disorder [None]
  - Impaired work ability [None]
